FAERS Safety Report 6898921-3 (Version None)
Quarter: 2010Q3

REPORT INFORMATION
  Report Type: 
  Country: None (occurrence: None)
  Receive Date: 20100802
  Receipt Date: 20071221
  Transmission Date: 20110219
  Serious: No
  Sender: FDA-Public Use
  Company Number: US-PFIZER INC-2007107997

PATIENT
  Sex: Female
  Weight: 58.51 kg

DRUGS (3)
  1. LYRICA [Suspect]
     Indication: NERVE COMPRESSION
     Dates: start: 20071031, end: 20071217
  2. NEURONTIN [Concomitant]
  3. AMBIEN [Concomitant]

REACTIONS (10)
  - DIZZINESS [None]
  - DYSPHONIA [None]
  - ERYTHEMA [None]
  - HYPERSENSITIVITY [None]
  - NASOPHARYNGITIS [None]
  - ORAL HERPES [None]
  - OROPHARYNGEAL PAIN [None]
  - RASH [None]
  - THROAT IRRITATION [None]
  - URTICARIA [None]
